FAERS Safety Report 20025367 (Version 1)
Quarter: 2021Q4

REPORT INFORMATION
  Report Type: Report from Study
  Country: US (occurrence: US)
  Receive Date: 20211102
  Receipt Date: 20211102
  Transmission Date: 20220303
  Serious: Yes (Other)
  Sender: FDA-Public Use
  Company Number: US-JAZZ-2021-US-016033

PATIENT
  Sex: Female

DRUGS (3)
  1. XYREM [Suspect]
     Active Substance: SODIUM OXYBATE
     Indication: Narcolepsy
     Dosage: 2.25 GRAM, BID
     Route: 048
     Dates: start: 201501, end: 201502
  2. XYREM [Suspect]
     Active Substance: SODIUM OXYBATE
     Dosage: DOSE ADJUSTMENT
     Route: 048
     Dates: start: 201502, end: 201512
  3. XYREM [Suspect]
     Active Substance: SODIUM OXYBATE
     Dosage: 4.5 GRAM, BID
     Route: 048
     Dates: start: 201512

REACTIONS (13)
  - Multiple sclerosis [Not Recovered/Not Resolved]
  - Migraine [Unknown]
  - Neurological symptom [Not Recovered/Not Resolved]
  - Metabolic syndrome [Unknown]
  - Insulin resistance [Unknown]
  - Hypothyroidism [Unknown]
  - Coccydynia [Not Recovered/Not Resolved]
  - Carpal tunnel syndrome [Not Recovered/Not Resolved]
  - Intervertebral disc degeneration [Not Recovered/Not Resolved]
  - Eczema [Not Recovered/Not Resolved]
  - Palpitations [Not Recovered/Not Resolved]
  - Neuralgia [Not Recovered/Not Resolved]
  - Arthralgia [Not Recovered/Not Resolved]
